FAERS Safety Report 7354181-0 (Version None)
Quarter: 2011Q1

REPORT INFORMATION
  Report Type: 
  Country: None (occurrence: None)
  Receive Date: 20110316
  Receipt Date: 20110302
  Transmission Date: 20110831
  Serious: Yes (Other)
  Sender: FDA-Public Use
  Company Number: US-BIOGENIDEC-2011BI008973

PATIENT
  Age: 69 Year
  Sex: Female

DRUGS (3)
  1. TYSABRI [Suspect]
     Route: 042
     Dates: start: 20091223, end: 20100120
  2. TYSABRI [Suspect]
     Indication: MULTIPLE SCLEROSIS
     Route: 042
     Dates: start: 20071221, end: 20080125
  3. TYSABRI [Suspect]
     Route: 042
     Dates: start: 20081223, end: 20090203

REACTIONS (8)
  - WEIGHT DECREASED [None]
  - ASTHENIA [None]
  - AGGRESSION [None]
  - HIP FRACTURE [None]
  - MUSCULAR WEAKNESS [None]
  - DYSSTASIA [None]
  - LIP AND/OR ORAL CAVITY CANCER [None]
  - MOBILITY DECREASED [None]
